FAERS Safety Report 14782593 (Version 12)
Quarter: 2019Q4

REPORT INFORMATION
  Report Type: Report from Study
  Country: CA (occurrence: CA)
  Receive Date: 20180420
  Receipt Date: 20191216
  Transmission Date: 20200122
  Serious: Yes (Other)
  Sender: FDA-Public Use
  Company Number: CA-ROCHE-2105464

PATIENT
  Age: 37 Year
  Sex: Female

DRUGS (4)
  1. OCREVUS [Suspect]
     Active Substance: OCRELIZUMAB
     Indication: RELAPSING-REMITTING MULTIPLE SCLEROSIS
     Dosage: 300MG DAY 1, 15 THEN 600MG EVERY 6 MONTH?300 MG/10 ML
     Route: 042
     Dates: start: 20180328
  2. FLOMAX [Concomitant]
     Active Substance: TAMSULOSIN HYDROCHLORIDE
  3. MIRTAZAPINE. [Concomitant]
     Active Substance: MIRTAZAPINE
     Dosage: SINCE ABOUT 4 YEARS
     Route: 065
  4. ZOPLICONE [Concomitant]
     Active Substance: ZOPICLONE
     Dosage: SINCE 4-5 YEARS
     Route: 065

REACTIONS (15)
  - Neurological symptom [Unknown]
  - Syncope [Recovered/Resolved]
  - Haemorrhage [Unknown]
  - Kidney infection [Recovered/Resolved]
  - Multiple sclerosis [Not Recovered/Not Resolved]
  - Nausea [Unknown]
  - Headache [Unknown]
  - Urinary tract infection [Not Recovered/Not Resolved]
  - Blindness [Not Recovered/Not Resolved]
  - Bacterial test positive [Unknown]
  - Pyrexia [Unknown]
  - Fall [Unknown]
  - Anxiety [Not Recovered/Not Resolved]
  - Head injury [Unknown]
  - Concussion [Recovered/Resolved]

NARRATIVE: CASE EVENT DATE: 201804
